FAERS Safety Report 5452542-8 (Version None)
Quarter: 2007Q3

REPORT INFORMATION
  Report Type: 
  Country: None (occurrence: None)
  Receive Date: 20070914
  Receipt Date: 20070905
  Transmission Date: 20080115
  Serious: Yes (Hospitalization)
  Sender: FDA-Public Use
  Company Number: US-KINGPHARMUSA00001-K200701139

PATIENT

DRUGS (10)
  1. ALTACE [Suspect]
     Dosage: 1.25 MG, BID
     Route: 048
     Dates: end: 20070814
  2. LASILIX RETARD /00032601/ [Suspect]
     Indication: HYPERTENSION
     Dosage: 60 MG, QD
     Route: 048
     Dates: end: 20070814
  3. ZOCOR [Suspect]
     Dosage: 20 MG, QD
     Route: 048
     Dates: end: 20070814
  4. FUMAFER [Suspect]
     Dosage: 2 U, QD
     Route: 048
     Dates: end: 20070814
  5. CALCIPARINE [Suspect]
     Dosage: 2 U, QD
     Route: 058
     Dates: end: 20070814
  6. CARDENSIEL [Concomitant]
  7. KARDEGIC /00002703/ [Concomitant]
     Route: 048
  8. INIPOMP /01263201/ [Concomitant]
     Dosage: UNK, UNK
  9. NORSET [Concomitant]
     Route: 048
  10. DAFALGAN /00020001/ [Concomitant]

REACTIONS (3)
  - GENERAL PHYSICAL HEALTH DETERIORATION [None]
  - HYPONATRAEMIA [None]
  - WEIGHT DECREASED [None]
